FAERS Safety Report 21752404 (Version 1)
Quarter: 2022Q4

REPORT INFORMATION
  Report Type: Spontaneous
  Country: US (occurrence: None)
  Receive Date: 20221220
  Receipt Date: 20221220
  Transmission Date: 20230112
  Serious: No
  Sender: FDA-Public Use
  Company Number: US-Merck Healthcare KGaA-9371741

PATIENT
  Age: 34 Year
  Sex: Male

DRUGS (3)
  1. MAVENCLAD [Suspect]
     Active Substance: CLADRIBINE
     Indication: Relapsing-remitting multiple sclerosis
     Dosage: YEAR ONE CYCLE ONE THERAPY
     Route: 048
     Dates: start: 20211123, end: 20211127
  2. MAVENCLAD [Suspect]
     Active Substance: CLADRIBINE
     Dosage: YEAR ONE CYCLE TWO THERAPY
     Route: 048
     Dates: start: 20211220, end: 20211224
  3. MAVENCLAD [Suspect]
     Active Substance: CLADRIBINE
     Dosage: YEAR TWO CYCLE ONE THERAPY
     Route: 048
     Dates: end: 20221127

REACTIONS (2)
  - Ophthalmic migraine [Unknown]
  - Headache [Unknown]

NARRATIVE: CASE EVENT DATE: 20221123
